FAERS Safety Report 17551414 (Version 9)
Quarter: 2020Q3

REPORT INFORMATION
  Report Type: Report from Study
  Country: CA (occurrence: CA)
  Receive Date: 20200317
  Receipt Date: 20200702
  Transmission Date: 20201102
  Serious: Yes (Hospitalization, Other)
  Sender: FDA-Public Use
  Company Number: CA-JNJFOC-20200202869

PATIENT
  Age: 33 Year
  Sex: Male

DRUGS (2)
  1. SIMPONI [Suspect]
     Active Substance: GOLIMUMAB
     Indication: COLITIS ULCERATIVE
     Route: 058
     Dates: start: 20200122, end: 20200128
  2. SIMPONI [Suspect]
     Active Substance: GOLIMUMAB
     Indication: CROHN^S DISEASE

REACTIONS (7)
  - Inflammation [Unknown]
  - Rhinorrhoea [Unknown]
  - Cholelithiasis [Unknown]
  - Gallbladder obstruction [Unknown]
  - Drug specific antibody [Unknown]
  - Sepsis [Unknown]
  - Hospitalisation [Unknown]

NARRATIVE: CASE EVENT DATE: 202001
